FAERS Safety Report 5072834-4 (Version None)
Quarter: 2006Q3

REPORT INFORMATION
  Report Type: 
  Country: None (occurrence: None)
  Receive Date: 20060802
  Receipt Date: 20060724
  Transmission Date: 20061208
  Serious: Yes (Hospitalization)
  Sender: FDA-Public Use
  Company Number: 2006RR-03028

PATIENT
  Age: 31 Year
  Sex: Male

DRUGS (2)
  1. AMOXICILLIN (AMOXICILLIN) TABLET [Suspect]
     Indication: TOOTH ABSCESS
     Dosage: 500 MG, TID, ORAL
     Route: 048
     Dates: start: 20060504, end: 20060508
  2. METRONIDAZOLE [Concomitant]

REACTIONS (1)
  - ACUTE GENERALISED EXANTHEMATOUS PUSTULOSIS [None]
